FAERS Safety Report 10066677 (Version 4)
Quarter: 2015Q1

REPORT INFORMATION
  Report Type: Report from Study
  Country: BR (occurrence: BR)
  Receive Date: 20140408
  Receipt Date: 20150115
  Transmission Date: 20150720
  Serious: Yes (Hospitalization)
  Sender: FDA-Public Use
  Company Number: PHHY2014BR040800

PATIENT
  Age: 34 Year
  Sex: Female
  Weight: 69 kg

DRUGS (6)
  1. TYLENOL [Concomitant]
     Active Substance: ACETAMINOPHEN
     Indication: PYREXIA
     Dosage: 500 MG, UNK
  2. DECADRON [Concomitant]
     Active Substance: DEXAMETHASONE
     Dosage: 4 MG, EVERY 8 HOURS
     Dates: start: 20140320, end: 20140325
  3. SOLU-MEDROL [Suspect]
     Active Substance: METHYLPREDNISOLONE SODIUM SUCCINATE
     Dosage: 1 G, EVERY 2 HOURS
     Dates: start: 20140326, end: 20140326
  4. PURAN [Concomitant]
     Active Substance: LEVOTHYROXINE SODIUM
     Indication: HYPOTHYROIDISM
     Dosage: 50 MG, QD
     Dates: start: 2013
  5. CERAZETTE [Concomitant]
     Active Substance: DESOGESTREL
     Indication: CONTRACEPTION
     Dosage: 75 MG, QD
     Dates: start: 2009
  6. GILENYA [Suspect]
     Active Substance: FINGOLIMOD HYDROCHLORIDE
     Indication: MULTIPLE SCLEROSIS
     Dosage: 0.5 MG, QD
     Route: 048
     Dates: start: 20140225

REACTIONS (10)
  - Multiple sclerosis relapse [Recovered/Resolved]
  - Gait disturbance [Recovering/Resolving]
  - Chills [Recovered/Resolved]
  - Joint lock [Recovered/Resolved]
  - Cytomegalovirus hepatitis [Not Recovered/Not Resolved]
  - Hepatic enzyme increased [Not Recovered/Not Resolved]
  - Limb discomfort [Recovered/Resolved]
  - Pyrexia [Recovered/Resolved]
  - White blood cell count increased [Not Recovered/Not Resolved]
  - Pain [Recovered/Resolved]

NARRATIVE: CASE EVENT DATE: 20140327
